FAERS Safety Report 7435945-1 (Version None)
Quarter: 2011Q2

REPORT INFORMATION
  Report Type: 
  Country: None (occurrence: None)
  Receive Date: 20110418
  Receipt Date: 20110401
  Transmission Date: 20111010
  Serious: Yes (Death, Hospitalization)
  Sender: FDA-Public Use
  Company Number: 2010001172

PATIENT
  Age: 65 Year
  Sex: Female
  Weight: 60.5 kg

DRUGS (4)
  1. OXYCODONE HCL [Concomitant]
  2. ERLOTINIB HYDROCHLORIDE [Suspect]
     Indication: ADENOCARCINOMA PANCREAS
     Dosage: 150 MG, QD, ORAL
     Route: 048
     Dates: start: 20100311, end: 20100324
  3. GDC-0449 (CAPSULES) [Suspect]
     Indication: ADENOCARCINOMA PANCREAS
     Dosage: 150 MG, QD, ORAL
     Route: 048
     Dates: start: 20100311, end: 20100324
  4. LORTAB (VICODIN) [Concomitant]

REACTIONS (7)
  - SMALL INTESTINAL OBSTRUCTION [None]
  - SINUS TACHYCARDIA [None]
  - COLONIC OBSTRUCTION [None]
  - DISEASE PROGRESSION [None]
  - DEHYDRATION [None]
  - PNEUMONIA [None]
  - LUNG INFECTION [None]
